FAERS Safety Report 20564457 (Version 1)
Quarter: 2022Q1

REPORT INFORMATION
  Report Type: Spontaneous
  Country: PL (occurrence: PL)
  Receive Date: 20220308
  Receipt Date: 20220308
  Transmission Date: 20220424
  Serious: Yes (Death, Hospitalization, Other)
  Sender: FDA-Public Use
  Company Number: PL-CELLTRION INC.-2021PL019004

PATIENT

DRUGS (5)
  1. INFLIXIMAB [Suspect]
     Active Substance: INFLIXIMAB
     Indication: Colitis ulcerative
     Dosage: UNK, STARTED 1 YEAR EARLIER
  2. PREDNISONE [Suspect]
     Active Substance: PREDNISONE
     Indication: Steroid therapy
     Dosage: UNK
  3. PREDNISONE [Suspect]
     Active Substance: PREDNISONE
     Indication: Colitis ulcerative
  4. AZATHIOPRINE [Suspect]
     Active Substance: AZATHIOPRINE
     Indication: Immunosuppression
     Dosage: UNK
  5. AZATHIOPRINE [Suspect]
     Active Substance: AZATHIOPRINE
     Indication: Colitis ulcerative

REACTIONS (4)
  - Haemophagocytic lymphohistiocytosis [Fatal]
  - Condition aggravated [Fatal]
  - Drug ineffective [Fatal]
  - Colitis ulcerative [Unknown]
